FAERS Safety Report 14372985 (Version 1)
Quarter: 2018Q1

REPORT INFORMATION
  Report Type: Spontaneous
  Country: US (occurrence: US)
  Receive Date: 20180110
  Receipt Date: 20180110
  Transmission Date: 20180509
  Serious: Yes (Death)
  Sender: FDA-Public Use
  Company Number: US-SA-2018SA005753

PATIENT
  Age: 52 Year
  Sex: Female

DRUGS (2)
  1. AMBIEN [Suspect]
     Active Substance: ZOLPIDEM TARTRATE
     Route: 048
  2. ZYPREXA [Suspect]
     Active Substance: OLANZAPINE
     Indication: DEPRESSION
     Dosage: 5 MG, 5 PILLS MISSING
     Route: 065

REACTIONS (1)
  - Poisoning [Fatal]
